FAERS Safety Report 19563505 (Version 1)
Quarter: 2021Q3

REPORT INFORMATION
  Report Type: Spontaneous
  Country: DE (occurrence: DE)
  Receive Date: 20210716
  Receipt Date: 20210716
  Transmission Date: 20211014
  Serious: Yes (Other)
  Sender: FDA-Public Use
  Company Number: DE-SUN PHARMACEUTICAL INDUSTRIES LTD-2021RR-304642

PATIENT
  Age: 63 Year
  Sex: Female
  Weight: 71 kg

DRUGS (10)
  1. PEGINTERFERON ALFA?2A. [Suspect]
     Active Substance: PEGINTERFERON ALFA-2A
     Dosage: 180 MICROGRAM, UNK
     Route: 058
     Dates: start: 20120621
  2. TELAPREVIR [Suspect]
     Active Substance: TELAPREVIR
     Dosage: UNK, DOSE REDUCED
     Route: 065
  3. TELAPREVIR [Suspect]
     Active Substance: TELAPREVIR
     Dosage: UNK
     Route: 065
  4. PANTOPRAZOLE [Suspect]
     Active Substance: PANTOPRAZOLE
     Dosage: DRUG NAME: PANTOZOL. ()
     Route: 065
  5. RIBAVIRIN. [Suspect]
     Active Substance: RIBAVIRIN
     Indication: CHRONIC HEPATITIS C
     Dosage: DOSE REDUCED ()
     Route: 065
  6. TELAPREVIR [Suspect]
     Active Substance: TELAPREVIR
     Indication: CHRONIC HEPATITIS C
     Dosage: UNK
     Route: 065
  7. PEGINTERFERON ALFA?2A. [Suspect]
     Active Substance: PEGINTERFERON ALFA-2A
     Indication: CHRONIC HEPATITIS C
     Dosage: UNK, DOSE REDUCED
     Route: 058
  8. PANTOPRAZOLE [Suspect]
     Active Substance: PANTOPRAZOLE
     Indication: PRODUCT USED FOR UNKNOWN INDICATION
     Dosage: DRUG NAME: PANTOZOL. ()
     Route: 065
  9. RIBAVIRIN. [Suspect]
     Active Substance: RIBAVIRIN
     Route: 065
  10. RIBAVIRIN. [Suspect]
     Active Substance: RIBAVIRIN
     Dosage: UNK
     Route: 065

REACTIONS (7)
  - Nausea [Unknown]
  - Dysgeusia [Unknown]
  - Anaemia [Not Recovered/Not Resolved]
  - Fatigue [Unknown]
  - Anaemia [Recovering/Resolving]
  - Dry throat [Unknown]
  - Pyrexia [Unknown]

NARRATIVE: CASE EVENT DATE: 20120622
